FAERS Safety Report 9698891 (Version 1)
Quarter: 2013Q4

REPORT INFORMATION
  Report Type: Spontaneous
  Country: US (occurrence: US)
  Receive Date: 20131120
  Receipt Date: 20131120
  Transmission Date: 20140711
  Serious: Yes (Other)
  Sender: FDA-Public Use
  Company Number: US-PFIZER INC-2013330773

PATIENT
  Age: 45 Year
  Sex: Female
  Weight: 86.17 kg

DRUGS (18)
  1. LYRICA [Suspect]
     Indication: DIABETIC NEUROPATHY
     Dosage: 300 MG, 2X/DAY
     Route: 048
  2. PROMETHAZINE [Concomitant]
     Dosage: UNK
  3. ESTRADIOL [Concomitant]
     Indication: HYSTERECTOMY
     Dosage: UNK
  4. REQUIP [Concomitant]
     Indication: RESTLESS LEGS SYNDROME
     Dosage: UNK
  5. ZENPEP [Concomitant]
     Dosage: UNK
  6. HYDROMORPHONE [Concomitant]
     Indication: PAIN
     Dosage: UNK
  7. MIRTAZAPINE [Concomitant]
     Dosage: UNK
  8. HYOSCYAMINE [Concomitant]
     Indication: HYPERTENSION
     Dosage: UNK
  9. OMEPRAZOL [Concomitant]
     Dosage: UNK
  10. KLOR-CON [Concomitant]
     Dosage: UNK
  11. VITAMIN B12 [Concomitant]
     Dosage: UNK
  12. ERGOCALCIFEROL [Concomitant]
     Dosage: UNK
  13. KLONOPIN [Concomitant]
     Dosage: UNK, 1X/DAY (EVERY NIGHT)
  14. FUROSEMIDE [Concomitant]
     Dosage: UNK
  15. LEVOTHYROXINE [Concomitant]
     Indication: HYPOTHYROIDISM
     Dosage: UNK
  16. BACLOFEN [Concomitant]
     Dosage: UNK, 3X/DAY
  17. ALBUTEROL [Concomitant]
     Dosage: UNK
  18. NEURONTIN [Concomitant]
     Dosage: UNK

REACTIONS (6)
  - Parkinson^s disease [Unknown]
  - Asthma [Unknown]
  - Sleep apnoea syndrome [Unknown]
  - Abdominal discomfort [Unknown]
  - Depression [Unknown]
  - Intentional drug misuse [Unknown]
